FAERS Safety Report 17946857 (Version 1)
Quarter: 2020Q2

REPORT INFORMATION
  Report Type: Spontaneous
  Country: DE (occurrence: DE)
  Receive Date: 20200626
  Receipt Date: 20200626
  Transmission Date: 20200714
  Serious: Yes (Congenital Anomaly)
  Sender: FDA-Public Use
  Company Number: DE-TEVA-2020-DE-1791406

PATIENT
  Age: 0 Year
  Sex: Male
  Weight: 4.63 kg

DRUGS (3)
  1. L-THYROXIN [Concomitant]
     Active Substance: LEVOTHYROXINE SODIUM
     Indication: AUTOIMMUNE THYROIDITIS
     Dosage: 25 MICROGRAM DAILY;
     Route: 064
     Dates: start: 20171019, end: 20180729
  2. IBUPROFEN. [Suspect]
     Active Substance: IBUPROFEN
     Indication: MIGRAINE
     Dosage: 600 MILLIGRAM DAILY;  ON DEMAND, TOTALLY 15 TIMES UNTIL WEEK 20
     Route: 064
  3. AGYRAX [Suspect]
     Active Substance: MECLIZINE HYDROCHLORIDE
     Indication: MORNING SICKNESS
     Dosage: 25 MILLIGRAM DAILY;
     Route: 064

REACTIONS (2)
  - Ventricular septal defect [Not Recovered/Not Resolved]
  - Foetal exposure during pregnancy [Unknown]
